FAERS Safety Report 9795615 (Version 3)
Quarter: 2016Q3

REPORT INFORMATION
  Report Type: Spontaneous
  Country: US (occurrence: US)
  Receive Date: 20140103
  Receipt Date: 20160915
  Transmission Date: 20161109
  Serious: No
  Sender: FDA-Public Use
  Company Number: US-PFIZER INC-2013374141

PATIENT
  Age: 59 Year
  Sex: Female
  Weight: 83.9 kg

DRUGS (4)
  1. PREMARIN [Concomitant]
     Active Substance: ESTROGENS, CONJUGATED
     Indication: POSTOPERATIVE CARE
     Dosage: UNK
  2. EFFEXOR XR [Suspect]
     Active Substance: VENLAFAXINE HYDROCHLORIDE
     Indication: MIGRAINE
     Dosage: 150 MG, DAILY, WITH FOOD
     Dates: end: 20131228
  3. RELPAX [Concomitant]
     Active Substance: ELETRIPTAN HYDROBROMIDE
     Indication: MIGRAINE
     Dosage: 40 MG, AS NEEDED, 1 TAB AT ONSET OF HEADACHE, MAY REPEAT ONCE AFTER 2 HOURS, MAX OF 2 DOSES IN 24 HR
  4. TOPAMAX [Concomitant]
     Active Substance: TOPIRAMATE
     Indication: MIGRAINE
     Dosage: 200 MG, UNK

REACTIONS (5)
  - Withdrawal syndrome [Not Recovered/Not Resolved]
  - Nervousness [Not Recovered/Not Resolved]
  - Screaming [Not Recovered/Not Resolved]
  - Intentional product misuse [Unknown]
  - Feeling abnormal [Not Recovered/Not Resolved]

NARRATIVE: CASE EVENT DATE: 20131228
